FAERS Safety Report 12587318 (Version 1)
Quarter: 2016Q3

REPORT INFORMATION
  Report Type: Spontaneous
  Country: HR (occurrence: HR)
  Receive Date: 20160725
  Receipt Date: 20160725
  Transmission Date: 20161109
  Serious: Yes (Hospitalization)
  Sender: FDA-Public Use
  Company Number: HR-TEVA-677374ACC

PATIENT
  Sex: Male

DRUGS (5)
  1. MODITEN DEPO [Concomitant]
     Indication: SCHIZOPHRENIA
     Dosage: UNK UNK, QW4
     Route: 030
  2. DIAZEPAM. [Concomitant]
     Active Substance: DIAZEPAM
     Indication: SCHIZOPHRENIA
     Dosage: 10 MILLIGRAM DAILY; 5 MG, (1,0,1)
     Route: 048
  3. RISSET [Suspect]
     Active Substance: RISPERIDONE
     Indication: SCHIZOPHRENIA
     Dosage: 2 MILLIGRAM DAILY; 2 MG, (0,0,1)
     Route: 048
  4. BIPERIDEN [Concomitant]
     Active Substance: BIPERIDEN
     Indication: SCHIZOPHRENIA
     Dosage: 2 MG, (1,0,0)
     Route: 065
  5. AKINETON [Concomitant]
     Active Substance: BIPERIDEN HYDROCHLORIDE
     Indication: SCHIZOPHRENIA
     Dosage: 5 MG, QW4
     Route: 030

REACTIONS (3)
  - Mood altered [Recovered/Resolved]
  - Activities of daily living impaired [Recovered/Resolved]
  - Disease progression [Unknown]
